FAERS Safety Report 12052108 (Version 2)
Quarter: 2016Q1

REPORT INFORMATION
  Report Type: Report from Study
  Country: US (occurrence: US)
  Receive Date: 20160209
  Receipt Date: 20160211
  Transmission Date: 20160526
  Serious: Yes (Life-Threatening)
  Sender: FDA-Public Use
  Company Number: US-EISAI MEDICAL RESEARCH-EC-2016-014209

PATIENT
  Age: 58 Year
  Sex: Female
  Weight: 42.9 kg

DRUGS (15)
  1. ERIBULIN [Suspect]
     Active Substance: ERIBULIN
     Route: 041
     Dates: start: 201601, end: 20160122
  2. PERTUZUMAB [Concomitant]
     Active Substance: PERTUZUMAB
     Indication: BREAST CANCER METASTATIC
     Route: 041
     Dates: start: 20151223, end: 20151223
  3. FILGRASTIM [Concomitant]
     Active Substance: FILGRASTIM
  4. ADVIL [Concomitant]
     Active Substance: IBUPROFEN
  5. NAMENDA [Concomitant]
     Active Substance: MEMANTINE HYDROCHLORIDE
  6. XELODA [Concomitant]
     Active Substance: CAPECITABINE
  7. ATIVAN [Concomitant]
     Active Substance: LORAZEPAM
  8. CYANOCOBALAMIN. [Concomitant]
     Active Substance: CYANOCOBALAMIN
  9. TRASTUZUMAB [Concomitant]
     Active Substance: TRASTUZUMAB
     Route: 041
     Dates: start: 201601, end: 20160122
  10. ERIBULIN [Suspect]
     Active Substance: ERIBULIN
     Indication: BREAST CANCER METASTATIC
     Route: 041
     Dates: start: 20151223, end: 20151223
  11. PERTUZUMAB [Concomitant]
     Active Substance: PERTUZUMAB
     Route: 041
     Dates: start: 201601, end: 20160122
  12. TRASTUZUMAB [Concomitant]
     Active Substance: TRASTUZUMAB
     Indication: BREAST CANCER METASTATIC
     Route: 041
     Dates: start: 20151223, end: 20151223
  13. CHOLECALCIFEROL [Concomitant]
     Active Substance: CHOLECALCIFEROL
  14. LEVAQUIN [Concomitant]
     Active Substance: LEVOFLOXACIN
  15. PYRIDOXINE [Concomitant]
     Active Substance: PYRIDOXINE

REACTIONS (1)
  - Neutropenia [Recovered/Resolved]

NARRATIVE: CASE EVENT DATE: 20151230
